FAERS Safety Report 12844306 (Version 2)
Quarter: 2016Q4

REPORT INFORMATION
  Report Type: Spontaneous
  Country: CA (occurrence: CA)
  Receive Date: 20161013
  Receipt Date: 20161027
  Transmission Date: 20170207
  Serious: Yes (Other)
  Sender: FDA-Public Use
  Company Number: CA-SA-2016SA182788

PATIENT
  Age: 79 Year
  Sex: Female

DRUGS (26)
  1. SYNTHROID [Concomitant]
     Active Substance: LEVOTHYROXINE SODIUM
     Route: 065
     Dates: start: 20100630
  2. PANTOPRAZOLE [Concomitant]
     Active Substance: PANTOPRAZOLE SODIUM
     Route: 065
  3. COQ10 [Concomitant]
     Active Substance: UBIDECARENONE
     Route: 065
  4. COLACE [Concomitant]
     Active Substance: DOCUSATE SODIUM
     Route: 065
  5. ACLASTA [Concomitant]
     Active Substance: ZOLEDRONIC ACID
     Dosage: YEARLY
     Route: 042
     Dates: start: 20111118
  6. NOVO-METOPROL [Concomitant]
     Active Substance: METOPROLOL TARTRATE
     Route: 065
  7. OXYCODONE HYDROCHLORIDE. [Concomitant]
     Active Substance: OXYCODONE HYDROCHLORIDE
     Dosage: 5MG 1-2 TABLETS EVERY 3 HOURS WHEN NEEDED
     Route: 065
  8. INSULIN GLARGINE [Concomitant]
     Active Substance: INSULIN GLARGINE
     Route: 065
  9. MYRBETRIQ [Concomitant]
     Active Substance: MIRABEGRON
     Route: 065
     Dates: end: 20150224
  10. CYMBALTA [Concomitant]
     Active Substance: DULOXETINE HYDROCHLORIDE
     Route: 065
  11. ASPIRIN. [Concomitant]
     Active Substance: ASPIRIN
     Route: 065
  12. TYLENOL EXTRA STRENGTH [Concomitant]
     Active Substance: ACETAMINOPHEN
     Dosage: 6-8 DAILY MAXIMUM 2 AT ONE TIME
     Route: 065
  13. LEFLUNOMIDE. [Suspect]
     Active Substance: LEFLUNOMIDE
     Route: 048
     Dates: start: 2006
  14. ENBREL [Suspect]
     Active Substance: ETANERCEPT
     Indication: RHEUMATOID ARTHRITIS
     Route: 065
     Dates: start: 200306, end: 2016
  15. REPAGLINIDE. [Concomitant]
     Active Substance: REPAGLINIDE
     Route: 065
     Dates: start: 20160826
  16. PREDNISONE. [Concomitant]
     Active Substance: PREDNISONE
     Route: 065
  17. METHOTREXATE. [Suspect]
     Active Substance: METHOTREXATE
     Indication: RHEUMATOID ARTHRITIS
     Route: 065
     Dates: start: 2004
  18. DIOVAN HCT [Concomitant]
     Active Substance: HYDROCHLOROTHIAZIDE\VALSARTAN
     Dosage: 160MG/ 12.5MG
     Route: 065
  19. TRAJENTA [Concomitant]
     Active Substance: LINAGLIPTIN
     Route: 065
  20. STREPTOCOCCUS FAECALIS/STREPTOCOCCUS LACTIS/LACTOBACILLUS LACTIS/BIFIDOBACTERIUM BIFIDUM/LACTOBACILL [Concomitant]
     Route: 065
  21. RESTORALAX [Concomitant]
     Active Substance: POLYETHYLENE GLYCOL 3350
     Route: 065
  22. VITAMIN D [Concomitant]
     Active Substance: CHOLECALCIFEROL
     Route: 065
  23. ADALAT CC [Concomitant]
     Active Substance: NIFEDIPINE
     Route: 065
  24. CRANBERRY. [Concomitant]
     Active Substance: CRANBERRY
     Route: 065
  25. XELJANZ [Concomitant]
     Active Substance: TOFACITINIB CITRATE
     Route: 065
  26. NITROFURANTOIN. [Concomitant]
     Active Substance: NITROFURANTOIN
     Route: 065

REACTIONS (5)
  - Hepatic enzyme increased [Unknown]
  - Skin disorder [Not Recovered/Not Resolved]
  - Post procedural infection [Unknown]
  - Urinary tract infection [Unknown]
  - Breast cancer [Unknown]

NARRATIVE: CASE EVENT DATE: 201609
